FAERS Safety Report 19224482 (Version 1)
Quarter: 2021Q2

REPORT INFORMATION
  Report Type: Spontaneous
  Country: US (occurrence: US)
  Receive Date: 20210506
  Receipt Date: 20210506
  Transmission Date: 20210717
  Serious: Yes (Other)
  Sender: FDA-Public Use
  Company Number: US-LUNDBECK-DKLU3032487

PATIENT
  Age: 1 Year
  Sex: Male

DRUGS (1)
  1. SABRIL [Suspect]
     Active Substance: VIGABATRIN
     Indication: INFANTILE SPASMS
     Route: 048
     Dates: start: 20210309

REACTIONS (3)
  - Drug ineffective [Unknown]
  - Fatigue [Unknown]
  - Infantile spasms [Unknown]

NARRATIVE: CASE EVENT DATE: 20210317
